FAERS Safety Report 5327936-1 (Version None)
Quarter: 2007Q2

REPORT INFORMATION
  Report Type: 
  Country: None (occurrence: None)
  Receive Date: 20070517
  Receipt Date: 20070507
  Transmission Date: 20071010
  Serious: Yes (Other)
  Sender: FDA-Public Use
  Company Number: US-PFIZER INC-2005135347

PATIENT
  Sex: Female

DRUGS (5)
  1. NEURONTIN [Suspect]
     Indication: BIPOLAR DISORDER
     Dates: start: 19991101, end: 20061014
  2. CELEXA [Suspect]
     Dates: start: 19991101, end: 20050801
  3. LAMICTAL [Suspect]
  4. KLONOPIN [Suspect]
  5. SEROQUEL [Suspect]

REACTIONS (3)
  - DRUG INEFFECTIVE [None]
  - MULTIPLE DRUG OVERDOSE [None]
  - SUICIDE ATTEMPT [None]
